FAERS Safety Report 5132362-4 (Version None)
Quarter: 2006Q4

REPORT INFORMATION
  Report Type: 
  Country: None (occurrence: None)
  Receive Date: 20061023
  Receipt Date: 20061010
  Transmission Date: 20070319
  Serious: Yes (Hospitalization)
  Sender: FDA-Public Use
  Company Number: PHRM2006FR02798

PATIENT
  Age: 80 Year
  Sex: Male
  Weight: 52 kg

DRUGS (5)
  1. ISOPTIN [Suspect]
     Dosage: 120 MG, QD
     Route: 048
  2. XATRAL [Suspect]
     Dosage: 10 MG, QD
     Route: 048
  3. TRIVASTAL [Concomitant]
     Dosage: 2 DF, QD
     Route: 048
  4. PRAVASTATIN [Concomitant]
     Dosage: 1 DF, QD
     Route: 048
  5. TAREG [Suspect]
     Dosage: 80 MG, QD
     Route: 048

REACTIONS (2)
  - DRUG INTERACTION [None]
  - ORTHOSTATIC HYPOTENSION [None]
